FAERS Safety Report 7681511-2 (Version None)
Quarter: 2011Q3

REPORT INFORMATION
  Report Type: 
  Country: None (occurrence: None)
  Receive Date: 20110812
  Receipt Date: 20110808
  Transmission Date: 20111222
  Serious: Yes (Other)
  Sender: FDA-Public Use
  Company Number: PHEH2011US01030

PATIENT
  Sex: Female

DRUGS (1)
  1. EXJADE [Suspect]
     Dosage: 125 MG, QD
     Route: 048

REACTIONS (6)
  - VOMITING [None]
  - NAUSEA [None]
  - DEPRESSION [None]
  - ABDOMINAL DISCOMFORT [None]
  - FATIGUE [None]
  - FALL [None]
